FAERS Safety Report 25852622 (Version 1)
Quarter: 2025Q3

REPORT INFORMATION
  Report Type: Spontaneous
  Country: US (occurrence: None)
  Receive Date: 20250925
  Receipt Date: 20250925
  Transmission Date: 20251020
  Serious: Yes (Other)
  Sender: FDA-CTU
  Company Number: None

PATIENT
  Age: 55 Year
  Sex: Female
  Weight: 59 kg

DRUGS (3)
  1. DOXORUBICIN HYDROCHLORIDE [Suspect]
     Active Substance: DOXORUBICIN HYDROCHLORIDE
     Route: 042
  2. ondansetron 16mg + Dexamethasone 20mg + Sodium Chloride 0.9 % 100ml [Concomitant]
     Dates: start: 20250908, end: 20250908
  3. palonsetron 0.25mg [Concomitant]
     Dates: start: 20250908, end: 20250908

REACTIONS (5)
  - Infusion related reaction [None]
  - Back pain [None]
  - Pelvic pain [None]
  - Urticaria [None]
  - Pruritus [None]

NARRATIVE: CASE EVENT DATE: 20250908
